FAERS Safety Report 7783643-7 (Version None)
Quarter: 2011Q3

REPORT INFORMATION
  Report Type: 
  Country: None (occurrence: None)
  Receive Date: 20110928
  Receipt Date: 20110914
  Transmission Date: 20111222
  Serious: No
  Sender: FDA-Public Use
  Company Number: US-B.I. PHARMACEUTICALS,INC./RIDGEFIELD-2011-BP-19733BP

PATIENT
  Sex: Female

DRUGS (8)
  1. FUROSEMIDE [Concomitant]
     Dosage: 80 MG
  2. LISINOPRIL [Concomitant]
     Dosage: 40 MG
  3. SERTRALINE HYDROCHLORIDE [Concomitant]
     Dosage: 100 MG
  4. MOBIC [Concomitant]
     Dosage: 15 MG
  5. PRADAXA [Suspect]
     Indication: ATRIAL FIBRILLATION
     Dosage: 300 MG
     Dates: start: 20110101
  6. LOPRESSOR [Concomitant]
     Dosage: 200 MG
  7. SIMVASTATIN [Concomitant]
     Dosage: 20 MG
  8. RANITIDINE [Concomitant]
     Dosage: 300 MG

REACTIONS (7)
  - PAIN [None]
  - DIZZINESS [None]
  - ARTHRALGIA [None]
  - ASTHENIA [None]
  - CONTUSION [None]
  - SWELLING [None]
  - HEADACHE [None]
